FAERS Safety Report 20507369 (Version 1)
Quarter: 2022Q1

REPORT INFORMATION
  Report Type: Spontaneous
  Country: US (occurrence: None)
  Receive Date: 20220223
  Receipt Date: 20220223
  Transmission Date: 20220424
  Serious: Yes (Other)
  Sender: FDA-Public Use
  Company Number: 2022A074344

PATIENT
  Age: 31319 Day
  Sex: Female
  Weight: 84.4 kg

DRUGS (7)
  1. BYDUREON BCISE [Suspect]
     Active Substance: EXENATIDE
     Indication: Blood glucose increased
     Route: 065
  2. LEMIVIR [Concomitant]
     Indication: Blood glucose increased
  3. INSULIN NOS [Concomitant]
     Active Substance: INSULIN NOS
     Indication: Blood glucose increased
  4. SPIRONOLACTONE [Concomitant]
     Active Substance: SPIRONOLACTONE
  5. LASIX [Concomitant]
     Active Substance: FUROSEMIDE
  6. PLAVIX [Concomitant]
     Active Substance: CLOPIDOGREL BISULFATE
  7. LOSARTAN [Concomitant]
     Active Substance: LOSARTAN
     Indication: Blood pressure measurement

REACTIONS (8)
  - Breast cancer [Unknown]
  - Hot flush [Not Recovered/Not Resolved]
  - Blood pressure increased [Unknown]
  - Condition aggravated [Not Recovered/Not Resolved]
  - Gallbladder disorder [Unknown]
  - Pain [Unknown]
  - Cardiac disorder [Unknown]
  - Dyspnoea [Unknown]

NARRATIVE: CASE EVENT DATE: 20210330
